FAERS Safety Report 18955121 (Version 1)
Quarter: 2021Q1

REPORT INFORMATION
  Report Type: Spontaneous
  Country: IN (occurrence: IN)
  Receive Date: 20210301
  Receipt Date: 20210301
  Transmission Date: 20210420
  Serious: Yes (Other)
  Sender: FDA-Public Use
  Company Number: IN-GLAXOSMITHKLINE-INCH2021GSK007688

PATIENT
  Age: 47 Year
  Sex: Male

DRUGS (2)
  1. DICLOFENAC [Suspect]
     Active Substance: DICLOFENAC
     Indication: PAIN
     Dosage: DAILY
  2. PARACETAMOL [Concomitant]
     Active Substance: ACETAMINOPHEN
     Indication: PAIN
     Dosage: DAILY

REACTIONS (5)
  - Ecchymosis [Unknown]
  - Haematuria [Unknown]
  - Coagulation factor X level decreased [Recovered/Resolved]
  - Drug interaction [Unknown]
  - Coagulation factor deficiency [Recovered/Resolved]
